FAERS Safety Report 18272084 (Version 2)
Quarter: 2020Q4

REPORT INFORMATION
  Report Type: Spontaneous
  Country: US (occurrence: US)
  Receive Date: 20200916
  Receipt Date: 20201026
  Transmission Date: 20210113
  Serious: Yes (Other)
  Sender: FDA-Public Use
  Company Number: US-BAYER-2020-191074

PATIENT
  Age: 82 Year
  Sex: Female

DRUGS (2)
  1. AFRIN SINUS [Suspect]
     Active Substance: OXYMETAZOLINE HYDROCHLORIDE
     Indication: HYPERSENSITIVITY
     Dosage: UNK, HS
     Route: 045
     Dates: start: 2020, end: 20200907
  2. AFRIN SINUS [Suspect]
     Active Substance: OXYMETAZOLINE HYDROCHLORIDE
     Indication: NASOPHARYNGITIS

REACTIONS (6)
  - Dyspnoea [Unknown]
  - Adverse event [None]
  - Nasal discomfort [Unknown]
  - Nasal congestion [Unknown]
  - Drug ineffective [Unknown]
  - Drug delivery system issue [None]
